FAERS Safety Report 23033380 (Version 1)
Quarter: 2023Q4

REPORT INFORMATION
  Report Type: Spontaneous
  Country: HR (occurrence: HR)
  Receive Date: 20231005
  Receipt Date: 20231005
  Transmission Date: 20240109
  Serious: Yes (Death, Hospitalization)
  Sender: FDA-Public Use
  Company Number: None

PATIENT
  Age: 78 Year
  Sex: Male

DRUGS (2)
  1. CARBOPLATIN [Suspect]
     Active Substance: CARBOPLATIN
     Indication: Lung adenocarcinoma
     Dosage: 580 MG, CYCLIC
     Route: 042
     Dates: start: 20230821, end: 20230821
  2. PEMETREXED [Suspect]
     Active Substance: PEMETREXED
     Indication: Lung adenocarcinoma
     Dosage: 800 MG, CYCLIC
     Route: 042
     Dates: start: 20230821, end: 20230821

REACTIONS (5)
  - Abdominal pain [Fatal]
  - Diarrhoea [Fatal]
  - Pyrexia [Fatal]
  - Febrile neutropenia [Fatal]
  - Haemoptysis [Fatal]

NARRATIVE: CASE EVENT DATE: 20230824
